FAERS Safety Report 16411752 (Version 1)
Quarter: 2019Q2

REPORT INFORMATION
  Report Type: Spontaneous
  Country: US (occurrence: US)
  Receive Date: 20190610
  Receipt Date: 20190610
  Transmission Date: 20190711
  Serious: Yes (Other)
  Sender: FDA-Public Use
  Company Number: US-BAUSCH-BL-2019-016474

PATIENT
  Sex: Female

DRUGS (2)
  1. RETISERT [Suspect]
     Active Substance: FLUOCINOLONE ACETONIDE
     Indication: BIRDSHOT CHORIORETINOPATHY
     Dosage: IN BOTH EYE (OU)
     Route: 047
     Dates: start: 200709
  2. OZURDEX [Concomitant]
     Active Substance: DEXAMETHASONE
     Indication: PRODUCT USED FOR UNKNOWN INDICATION
     Dosage: QUARTERLY IN EACH EYE
     Route: 047

REACTIONS (4)
  - Macular fibrosis [Unknown]
  - Glaucoma [Unknown]
  - Retinal detachment [Unknown]
  - Device dislocation [Unknown]
